FAERS Safety Report 12767619 (Version 9)
Quarter: 2016Q4

REPORT INFORMATION
  Report Type: Report from Study
  Country: BE (occurrence: BE)
  Receive Date: 20160921
  Receipt Date: 20161227
  Transmission Date: 20170207
  Serious: Yes (Hospitalization, Other)
  Sender: FDA-Public Use
  Company Number: BE-BAYER-2016-179653

PATIENT
  Age: 50 Year
  Sex: Female

DRUGS (4)
  1. STIVARGA [Suspect]
     Active Substance: REGORAFENIB
     Indication: METASTASES TO LIVER
     Dosage: 160 MG DAILY
     Route: 048
     Dates: end: 20161031
  2. STIVARGA [Suspect]
     Active Substance: REGORAFENIB
     Indication: METASTASES TO LUNG
     Dosage: DAILY DOSE 160 MG
     Route: 048
     Dates: start: 20160919
  3. STIVARGA [Suspect]
     Active Substance: REGORAFENIB
     Indication: COLORECTAL CANCER STAGE IV
     Dosage: DAILY DOSE 160 MG
     Dates: start: 20160905, end: 20160907
  4. STIVARGA [Suspect]
     Active Substance: REGORAFENIB
     Indication: METASTASES TO UTERUS
     Dosage: 120 DAILY DOSE
     Route: 048

REACTIONS (26)
  - Loss of consciousness [Recovered/Resolved]
  - Epilepsy [Unknown]
  - Immunodeficiency [None]
  - Fall [None]
  - Feeling hot [None]
  - Diarrhoea [None]
  - Pyrexia [None]
  - Dysphonia [None]
  - Asthenia [None]
  - Decreased appetite [None]
  - Fatigue [None]
  - Female genital tract fistula [None]
  - Feeling hot [None]
  - Palmar-plantar erythrodysaesthesia syndrome [Not Recovered/Not Resolved]
  - Pain in extremity [Not Recovered/Not Resolved]
  - Diarrhoea [None]
  - Decreased appetite [None]
  - Back pain [None]
  - Asthenia [Not Recovered/Not Resolved]
  - Asthenia [None]
  - Reading disorder [None]
  - Post-traumatic pain [Not Recovered/Not Resolved]
  - Weight decreased [Not Recovered/Not Resolved]
  - Sepsis [None]
  - Dyspnoea exertional [None]
  - Herpes zoster [None]

NARRATIVE: CASE EVENT DATE: 2016
